FAERS Safety Report 6823683-5 (Version None)
Quarter: 2010Q3

REPORT INFORMATION
  Report Type: 
  Country: None (occurrence: None)
  Receive Date: 20100708
  Receipt Date: 20060828
  Transmission Date: 20110219
  Serious: No
  Sender: FDA-Public Use
  Company Number: US-PFIZER INC-2006105694

PATIENT
  Sex: Female
  Weight: 65.77 kg

DRUGS (5)
  1. VARENICLINE [Suspect]
     Indication: EX-TOBACCO USER
     Dates: start: 20060101
  2. TRAZODONE [Concomitant]
  3. CELEXA [Concomitant]
  4. PREMARIN [Concomitant]
  5. FOLTX [Concomitant]

REACTIONS (2)
  - DRY EYE [None]
  - OCULAR HYPERAEMIA [None]
